FAERS Safety Report 9191015 (Version 5)
Quarter: 2013Q4

REPORT INFORMATION
  Report Type: Spontaneous
  Country: US (occurrence: US)
  Receive Date: 20130326
  Receipt Date: 20131206
  Transmission Date: 20140711
  Serious: Yes (Hospitalization, Other)
  Sender: FDA-Public Use
  Company Number: US-009507513-1303USA009741

PATIENT
  Sex: Female
  Weight: 44.44 kg

DRUGS (3)
  1. FOSAMAX [Suspect]
     Indication: OSTEOPOROSIS PROPHYLAXIS
     Dosage: 70 MG, QW
     Route: 048
     Dates: start: 2004, end: 2008
  2. RECLAST [Concomitant]
     Indication: OSTEOPOROSIS
  3. ZOMETA [Concomitant]
     Indication: OSTEOPOROSIS

REACTIONS (34)
  - Pathological fracture [Unknown]
  - Intramedullary rod insertion [Unknown]
  - Tibia fracture [Unknown]
  - Tibia fracture [Unknown]
  - Vertebroplasty [Unknown]
  - Thoracic vertebral fracture [Unknown]
  - Lumbar vertebral fracture [Unknown]
  - Spinal compression fracture [Not Recovered/Not Resolved]
  - Thoracic vertebral fracture [Not Recovered/Not Resolved]
  - Limb operation [Unknown]
  - Vitamin D deficiency [Unknown]
  - Kyphosis [Not Recovered/Not Resolved]
  - Osteopenia [Unknown]
  - Intervertebral disc protrusion [Unknown]
  - Osteoarthritis [Unknown]
  - Intervertebral disc degeneration [Unknown]
  - Vertebral foraminal stenosis [Unknown]
  - Lordosis [Unknown]
  - Bone neoplasm [Unknown]
  - Osteoarthropathy [Unknown]
  - Foot fracture [Unknown]
  - Sciatica [Unknown]
  - Body height decreased [Unknown]
  - Gallbladder operation [Unknown]
  - Acetabulum fracture [Unknown]
  - Pubis fracture [Unknown]
  - Vertebroplasty [Unknown]
  - Osteoarthritis [Unknown]
  - Ear operation [Unknown]
  - Migraine [Unknown]
  - Bone cyst [Unknown]
  - Back pain [Not Recovered/Not Resolved]
  - Abdominal pain [Unknown]
  - Gastrooesophageal reflux disease [Unknown]
